FAERS Safety Report 8142762-6 (Version None)
Quarter: 2012Q1

REPORT INFORMATION
  Report Type: 
  Country: None (occurrence: None)
  Receive Date: 20120216
  Receipt Date: 20120206
  Transmission Date: 20120608
  Serious: Yes (Other)
  Sender: FDA-Public Use
  Company Number: US-ABBOTT-12P-163-0901183-00

PATIENT
  Sex: Female
  Weight: 76.272 kg

DRUGS (14)
  1. DETROL LA [Concomitant]
     Indication: PRODUCT USED FOR UNKNOWN INDICATION
  2. SYNTHROID [Suspect]
     Indication: HYPOTHYROIDISM
     Route: 048
  3. SYNTHROID [Suspect]
     Route: 048
     Dates: start: 20100101
  4. NEXIUM [Concomitant]
     Indication: PRODUCT USED FOR UNKNOWN INDICATION
  5. HYDROCORTISONE [Suspect]
     Indication: BLOOD CORTISOL DECREASED
     Route: 048
  6. THYROID TAB [Concomitant]
     Indication: HYPOTHYROIDISM
  7. LEVOTHYROXINE SODIUM [Concomitant]
     Indication: HYPOTHYROIDISM
     Dosage: RECEIVED FROM A COUMPOUNDING PHARMACY.
  8. FUROSEMIDE [Concomitant]
     Indication: PRODUCT USED FOR UNKNOWN INDICATION
  9. SYNTHROID [Suspect]
     Route: 048
  10. HYDROCORTISONE [Suspect]
     Dosage: TAKING HALF PILL DAILY
     Route: 048
  11. LEVOTHYROXINE SODIUM [Concomitant]
     Dates: start: 20090101, end: 20100101
  12. ARMODAFINIL [Concomitant]
     Indication: SINUSITIS
  13. CLARITIN [Concomitant]
     Indication: PRODUCT USED FOR UNKNOWN INDICATION
  14. PROPRANOLOL [Concomitant]
     Indication: HEART RATE INCREASED

REACTIONS (7)
  - BLOOD GLUCOSE INCREASED [None]
  - PITUITARY-DEPENDENT CUSHING'S SYNDROME [None]
  - THYROID DISORDER [None]
  - SINUSITIS [None]
  - PITUITARY TUMOUR [None]
  - LOCAL SWELLING [None]
  - HEART RATE INCREASED [None]
